FAERS Safety Report 8724715 (Version 4)
Quarter: 2013Q1

REPORT INFORMATION
  Report Type: Report from Study
  Country: PT (occurrence: PT)
  Receive Date: 20120815
  Receipt Date: 20130101
  Transmission Date: 20140127
  Serious: Yes (Death)
  Sender: FDA-Public Use
  Company Number: PT-ROCHE-1049483

PATIENT
  Age: 69 Year
  Sex: Female

DRUGS (5)
  1. BLINDED BI 201335 [Suspect]
     Indication: CHRONIC HEPATITIS C
     Route: 048
     Dates: start: 20111128, end: 20120226
  2. PEG-INTERFERON ALFA 2A [Suspect]
     Indication: CHRONIC HEPATITIS C
     Route: 030
     Dates: start: 20111128
  3. RIBAVIRIN [Suspect]
     Indication: CHRONIC HEPATITIS C
     Route: 048
     Dates: start: 20111128, end: 20120226
  4. SERTRALINA [Concomitant]
     Indication: ANXIETY
     Route: 065
     Dates: start: 20111206, end: 20120120
  5. SERTRALINA [Concomitant]
     Route: 065
     Dates: start: 20120121

REACTIONS (13)
  - Multiple injuries [Fatal]
  - Fall [Fatal]
  - Cardio-respiratory arrest [Fatal]
  - Chest pain [Fatal]
  - Hypotension [Fatal]
  - Coma [Fatal]
  - Anaemia [Fatal]
  - Thrombocytopenia [Fatal]
  - Haemothorax [Fatal]
  - Peritoneal haemorrhage [Fatal]
  - Metabolic acidosis [Fatal]
  - Bradycardia [Fatal]
  - Anxiety [Unknown]
